FAERS Safety Report 8392426-9 (Version None)
Quarter: 2012Q2

REPORT INFORMATION
  Report Type: 
  Country: None (occurrence: None)
  Receive Date: 20120529
  Receipt Date: 20120505
  Transmission Date: 20120825
  Serious: Yes (Other)
  Sender: FDA-Public Use
  Company Number: PT-ROCHE-1066183

PATIENT
  Age: 24 Year
  Sex: Female

DRUGS (2)
  1. PEGINTERFERON ALFA-2A [Suspect]
     Indication: HEPATITIS C
     Dates: start: 20060217
  2. RIBAVIRIN [Suspect]
     Indication: HEPATITIS C
     Dates: start: 20060217

REACTIONS (4)
  - PANCYTOPENIA [None]
  - MATERNAL EXPOSURE DURING PREGNANCY [None]
  - ABORTION SPONTANEOUS [None]
  - RESPIRATORY TRACT INFECTION [None]
